FAERS Safety Report 6192888-1 (Version None)
Quarter: 2009Q2

REPORT INFORMATION
  Report Type: 
  Country: None (occurrence: None)
  Receive Date: 20090518
  Receipt Date: 20090507
  Transmission Date: 20091009
  Serious: Yes (Other)
  Sender: FDA-Public Use
  Company Number: BR-BAYER-200916217LA

PATIENT
  Age: 33 Year
  Sex: Female

DRUGS (5)
  1. MIRENA [Suspect]
     Indication: MENSTRUAL CYCLE MANAGEMENT
     Dosage: FREQUENCY: CONTINUOUS
     Route: 015
     Dates: start: 20090119
  2. VENALOT [Concomitant]
     Indication: CARDIOVASCULAR DISORDER
     Route: 048
     Dates: start: 20090422
  3. PAROXETINE [Concomitant]
     Indication: DEPRESSION
     Dosage: TOTAL DAILY DOSE: 20 MG  UNIT DOSE: 20 MG
     Route: 048
     Dates: start: 20081101
  4. CLONAZEPAM [Concomitant]
     Indication: DEPRESSION
     Dosage: TOTAL DAILY DOSE: 1 MG  UNIT DOSE: 1 MG
     Route: 048
     Dates: start: 20081101
  5. GEROVITAL [Concomitant]
     Indication: VITAMIN SUPPLEMENTATION
     Route: 048
     Dates: start: 20090422

REACTIONS (10)
  - ABDOMINAL DISTENSION [None]
  - ABDOMINAL PAIN [None]
  - BREAST DISCHARGE [None]
  - BREAST SWELLING [None]
  - NAUSEA [None]
  - PHLEBITIS [None]
  - PREGNANCY WITH CONTRACEPTIVE DEVICE [None]
  - SOMNOLENCE [None]
  - VAGINAL DISCHARGE [None]
  - VOMITING [None]
